FAERS Safety Report 24664113 (Version 1)
Quarter: 2024Q4

REPORT INFORMATION
  Report Type: Spontaneous
  Country: CN (occurrence: CN)
  Receive Date: 20241126
  Receipt Date: 20241126
  Transmission Date: 20250114
  Serious: Yes (Other)
  Sender: BIOGEN
  Company Number: CN-BAT-2024BAT001062

PATIENT
  Age: 62 Year
  Sex: Female
  Weight: 51.0 kg

DRUGS (1)
  1. TOFIDENCE [Suspect]
     Active Substance: TOCILIZUMAB-BAVI
     Indication: Rheumatoid arthritis
     Dosage: ONCE ONLY
     Route: 041
     Dates: start: 20241110, end: 20241110

REACTIONS (2)
  - Xerophthalmia [Recovered/Resolved]
  - Dry mouth [Recovered/Resolved]

NARRATIVE: CASE EVENT DATE: 20241110
